FAERS Safety Report 15449764 (Version 1)
Quarter: 2018Q4

REPORT INFORMATION
  Report Type: Spontaneous
  Country: AR (occurrence: AR)
  Receive Date: 20181001
  Receipt Date: 20181001
  Transmission Date: 20190204
  Serious: Yes (Hospitalization, Other)
  Sender: FDA-Public Use
  Company Number: AR-ABBVIE-18K-007-2504386-00

PATIENT

DRUGS (1)
  1. VENETOCLAX. [Suspect]
     Active Substance: VENETOCLAX
     Indication: NON-HODGKIN^S LYMPHOMA
     Route: 048

REACTIONS (4)
  - Thrombocytopenia [Unknown]
  - Neutropenia [Unknown]
  - Diverticulum [Unknown]
  - Intestinal obstruction [Unknown]
